FAERS Safety Report 7314790-1 (Version None)
Quarter: 2011Q1

REPORT INFORMATION
  Report Type: 
  Country: None (occurrence: None)
  Receive Date: 20110225
  Receipt Date: 20101207
  Transmission Date: 20110831
  Serious: No
  Sender: FDA-Public Use
  Company Number: US-MYLANLABS-2010S1022620

PATIENT
  Sex: Female

DRUGS (5)
  1. CLARAVIS [Suspect]
  2. AMNESTEEM [Suspect]
  3. AMNESTEEM [Suspect]
  4. CLARAVIS [Suspect]
  5. CLARAVIS [Suspect]

REACTIONS (1)
  - ABDOMINAL PAIN UPPER [None]
